FAERS Safety Report 6154748-1 (Version None)
Quarter: 2009Q2

REPORT INFORMATION
  Report Type: 
  Country: None (occurrence: None)
  Receive Date: 20090414
  Receipt Date: 20090404
  Transmission Date: 20091009
  Serious: Yes (Other)
  Sender: FDA-Public Use
  Company Number: FR-ABBOTT-09P-056-0566599-00

PATIENT
  Age: 65 Year
  Sex: Female

DRUGS (5)
  1. RITONAVIR [Suspect]
     Indication: HIV INFECTION
     Route: 048
     Dates: start: 20031001
  2. FLUTICASONE PROPIONATE W/SALMETEROL XINAFOATE [Interacting]
     Indication: CHRONIC OBSTRUCTIVE PULMONARY DISEASE
     Dosage: 250/50 MCG DISKUS
     Route: 055
     Dates: start: 20050701, end: 20051201
  3. FOSAMPRENAVIR [Concomitant]
     Indication: DRUG USE FOR UNKNOWN INDICATION
     Dates: start: 20050701
  4. LAMIVUDINE [Concomitant]
     Indication: DRUG USE FOR UNKNOWN INDICATION
     Dates: start: 20050701
  5. DIDANOSINE [Concomitant]
     Indication: DRUG USE FOR UNKNOWN INDICATION
     Dates: start: 20050701

REACTIONS (9)
  - ACNE [None]
  - AMYOTROPHY [None]
  - BLOOD CORTISOL DECREASED [None]
  - CENTRAL OBESITY [None]
  - CUSHING'S SYNDROME [None]
  - CUSHINGOID [None]
  - DRUG INTERACTION [None]
  - OSTEOPOROSIS [None]
  - SKIN STRIAE [None]
